FAERS Safety Report 8005172-8 (Version None)
Quarter: 2011Q4

REPORT INFORMATION
  Report Type: 
  Country: None (occurrence: None)
  Receive Date: 20111223
  Receipt Date: 20111219
  Transmission Date: 20120403
  Serious: Yes (Death, Hospitalization)
  Sender: FDA-Public Use
  Company Number: PHHY2011AU107957

PATIENT
  Sex: Female

DRUGS (9)
  1. ATENOLOL [Concomitant]
     Dosage: 1 DAILY
  2. CAL-500 [Concomitant]
     Dosage: UNK UKN, QD
     Route: 048
  3. ZOLEDRONOC ACID [Suspect]
     Dosage: 5 MG, UNK
     Route: 042
     Dates: start: 20100525
  4. ZOLEDRONOC ACID [Suspect]
     Dosage: 5 MG, UNK
     Route: 042
     Dates: start: 20090520
  5. CALCIUM CARBONATE [Concomitant]
     Dosage: UNK UKN, BID
     Dates: start: 20070808
  6. INDAPAMIDE [Concomitant]
     Dosage: UNK UKN, UNK
     Dates: start: 20071015
  7. TRAMADOL HYDROCHLORIDE [Concomitant]
     Dosage: 1, BID
     Dates: start: 20100511
  8. OSTEOVIT [Concomitant]
     Dosage: 25 UG, QD
     Route: 048
  9. ATACAND [Concomitant]
     Dosage: 1 DAILY, HALF TABLET DAILY
     Route: 048

REACTIONS (20)
  - ABDOMINAL PAIN [None]
  - GENERAL PHYSICAL HEALTH DETERIORATION [None]
  - ACUTE RESPIRATORY FAILURE [None]
  - BALANCE DISORDER [None]
  - BACK PAIN [None]
  - SMALL INTESTINAL OBSTRUCTION [None]
  - PULMONARY CONGESTION [None]
  - TENDERNESS [None]
  - CEREBRAL HAEMATOMA [None]
  - PAIN [None]
  - HYPOKINESIA [None]
  - DEHYDRATION [None]
  - ELECTROLYTE IMBALANCE [None]
  - PAIN IN EXTREMITY [None]
  - SEPTIC SHOCK [None]
  - ESCHERICHIA URINARY TRACT INFECTION [None]
  - FALL [None]
  - DIARRHOEA [None]
  - RENAL FAILURE ACUTE [None]
  - ATROPHY [None]
